FAERS Safety Report 9264516 (Version 1)
Quarter: 2013Q2

REPORT INFORMATION
  Report Type: Spontaneous
  Country: IT (occurrence: IT)
  Receive Date: 20130501
  Receipt Date: 20130501
  Transmission Date: 20140414
  Serious: Yes (Hospitalization)
  Sender: FDA-Public Use
  Company Number: IT-ROCHE-1220064

PATIENT
  Age: 66 Year
  Sex: Male

DRUGS (1)
  1. RIVOTRIL [Suspect]
     Indication: ANXIETY
     Route: 048
     Dates: start: 20130314, end: 20130314

REACTIONS (2)
  - Sopor [Recovered/Resolved]
  - Medication error [Recovered/Resolved]
